FAERS Safety Report 8758870 (Version 1)
Quarter: 2012Q4

REPORT INFORMATION
  Report Type: 
  Country: JP (occurrence: JP)
  Receive Date: 20120829
  Receipt Date: 20120829
  Transmission Date: 20130627
  Serious: Yes (Hospitalization)
  Sender: FDA-Public Use
  Company Number: PHHY2012JP073624

PATIENT

DRUGS (2)
  1. TASIGNA [Suspect]
     Indication: CHRONIC MYELOID LEUKAEMIA
     Route: 048
  2. DRUGS FOR TREATMENT OF PEPTIC ULCER [Concomitant]

REACTIONS (2)
  - Oesophagitis [Unknown]
  - Chest pain [Recovering/Resolving]
